FAERS Safety Report 15301205 (Version 1)
Quarter: 2018Q3

REPORT INFORMATION
  Report Type: Spontaneous
  Country: US (occurrence: US)
  Receive Date: 20180809
  Receipt Date: 20180809
  Transmission Date: 20181010
  Serious: Yes (Disabling)
  Sender: FDA-Public Use
  Company Number: None

PATIENT
  Age: 73 Year
  Sex: Female
  Weight: 56.25 kg

DRUGS (4)
  1. BABY ASPIRIN [Concomitant]
     Active Substance: ASPIRIN
  2. BIOFREEZE ROLL?ON [Suspect]
     Active Substance: MENTHOL
     Indication: BACK PAIN
     Route: 061
     Dates: start: 20170630, end: 20170714
  3. GLUCOSAMINE [Concomitant]
     Active Substance: GLUCOSAMINE
  4. FISH OIL [Concomitant]
     Active Substance: FISH OIL

REACTIONS (2)
  - Extranodal marginal zone B-cell lymphoma (MALT type) [None]
  - Application site reaction [None]

NARRATIVE: CASE EVENT DATE: 20170630
